FAERS Safety Report 23067161 (Version 1)
Quarter: 2023Q4

REPORT INFORMATION
  Report Type: Report from Study
  Country: US (occurrence: US)
  Receive Date: 20231016
  Receipt Date: 20231016
  Transmission Date: 20240109
  Serious: Yes (Hospitalization)
  Sender: FDA-Public Use
  Company Number: US-TAKEDA-US201922921

PATIENT
  Sex: Female

DRUGS (1)
  1. HUMAN IMMUNOGLOBULIN G [Suspect]
     Active Substance: HUMAN IMMUNOGLOBULIN G
     Indication: Primary immunodeficiency syndrome
     Dosage: UNK
     Route: 042

REACTIONS (7)
  - Life expectancy shortened [Unknown]
  - Fall [Unknown]
  - Face injury [Unknown]
  - Patella fracture [Unknown]
  - Joint dislocation [Unknown]
  - Hyperparathyroidism [Unknown]
  - Malaise [Unknown]
